FAERS Safety Report 9078593 (Version 1)
Quarter: 2013Q1

REPORT INFORMATION
  Report Type: Report from Study
  Country: US (occurrence: US)
  Receive Date: 20130130
  Receipt Date: 20130130
  Transmission Date: 20140127
  Serious: No
  Sender: FDA-Public Use
  Company Number: US-ABBOTT-12P-163-0963227-00

PATIENT
  Age: 55 Year
  Sex: Female
  Weight: 77.18 kg

DRUGS (3)
  1. HUMIRA 40 MG/0.8 ML PEN [Suspect]
     Indication: PSORIATIC ARTHROPATHY
     Dates: start: 20120710, end: 20120710
  2. HUMIRA 40 MG/0.8 ML PEN [Suspect]
     Dates: start: 20120726, end: 20120726
  3. METHOTREXATE [Concomitant]
     Indication: PSORIATIC ARTHROPATHY

REACTIONS (4)
  - Defaecation urgency [Recovered/Resolved]
  - Faecal incontinence [Recovered/Resolved]
  - Pain [Recovered/Resolved]
  - Incorrect dose administered [Not Recovered/Not Resolved]
